FAERS Safety Report 10379459 (Version 2)
Quarter: 2014Q4

REPORT INFORMATION
  Report Type: Spontaneous
  Country: US (occurrence: None)
  Receive Date: 20140808
  Receipt Date: 20141219
  Transmission Date: 20150528
  Serious: Yes (Hospitalization)
  Sender: FDA-Public Use
  Company Number: US-000897

PATIENT
  Age: 53 Year
  Sex: Male

DRUGS (6)
  1. FAT EMULSION NOS [Concomitant]
     Active Substance: EGG PHOSPHOLIPIDS\SAFFLOWER OIL\SOYBEAN OIL
  2. NEXIUM [Concomitant]
     Active Substance: ESOMEPRAZOLE MAGNESIUM
  3. GATTEX [Suspect]
     Active Substance: TEDUGLUTIDE\WATER
     Indication: SHORT-BOWEL SYNDROME
     Route: 058
     Dates: start: 20131216, end: 20140508
  4. LOVENOX [Concomitant]
     Active Substance: ENOXAPARIN SODIUM
  5. SOLUTIONS FOR PARENTERAL NUTRITION [Concomitant]
     Active Substance: AMINO ACIDS\DEXTROSE\ELECTROLYTES NOS
  6. VITAMIN D [Concomitant]
     Active Substance: CHOLECALCIFEROL

REACTIONS (10)
  - Pain in extremity [None]
  - Cholelithiasis [None]
  - Gastrointestinal stoma complication [None]
  - Drug dose omission [None]
  - Injection site urticaria [None]
  - Injection site erythema [None]
  - Injection site swelling [None]
  - Nausea [None]
  - Injection site inflammation [None]
  - Cholecystitis [None]

NARRATIVE: CASE EVENT DATE: 20131216
